FAERS Safety Report 4761480-5 (Version None)
Quarter: 2005Q3

REPORT INFORMATION
  Report Type: 
  Country: None (occurrence: None)
  Receive Date: 20050901
  Receipt Date: 20050901
  Transmission Date: 20060218
  Serious: Yes (Other)
  Sender: FDA-Public Use
  Company Number: None

PATIENT
  Sex: Female
  Weight: 50 kg

DRUGS (2)
  1. FLUOROURACIL [Suspect]
     Indication: GASTRIC CANCER
     Dates: start: 20050815, end: 20050819
  2. LEUCOVORIN [Suspect]
     Dates: start: 20050815, end: 20050819

REACTIONS (10)
  - ASTHENIA [None]
  - DIARRHOEA [None]
  - FREQUENT BOWEL MOVEMENTS [None]
  - INFECTION [None]
  - MUCOSAL INFLAMMATION [None]
  - ORAL PAIN [None]
  - PHARYNGITIS [None]
  - PYREXIA [None]
  - SEPSIS [None]
  - STOMATITIS [None]
